FAERS Safety Report 5506140-8 (Version None)
Quarter: 2007Q4

REPORT INFORMATION
  Report Type: 
  Country: None (occurrence: None)
  Receive Date: 20071026
  Receipt Date: 20071026
  Transmission Date: 20080405
  Serious: No
  Sender: FDA-Public Use
  Company Number: None

PATIENT
  Age: 31 Year
  Sex: Male
  Weight: 138.3 kg

DRUGS (2)
  1. LOSARTAN POTASSIUM [Suspect]
     Indication: DRUG THERAPY
     Dosage: 100MG DAILY PO
     Route: 048
     Dates: start: 20070919
  2. LISINOPRIL [Suspect]
     Indication: HYPERTENSION
     Dosage: 40MG DAILY PO
     Route: 048
     Dates: start: 20070919

REACTIONS (1)
  - ANGIOEDEMA [None]
